FAERS Safety Report 11658040 (Version 1)
Quarter: 2015Q4

REPORT INFORMATION
  Report Type: Spontaneous
  Country: US (occurrence: US)
  Receive Date: 20151023
  Receipt Date: 20151023
  Transmission Date: 20160304
  Serious: Yes (Other)
  Sender: FDA-Public Use
  Company Number: US-JAZZ-2015-US-017343

PATIENT
  Age: 40 Year
  Weight: 54 kg

DRUGS (3)
  1. XYREM [Suspect]
     Active Substance: SODIUM OXYBATE
     Dosage: 4.5 G, BID
     Route: 048
  2. XYREM [Suspect]
     Active Substance: SODIUM OXYBATE
     Indication: NARCOLEPSY
     Dosage: 2.5 G, BID
     Route: 048
  3. XYREM [Suspect]
     Active Substance: SODIUM OXYBATE
     Dosage: 3 G, BID
     Route: 048

REACTIONS (14)
  - Drug tolerance [Unknown]
  - Myalgia [Unknown]
  - Anxiety [Unknown]
  - Drug dependence [Unknown]
  - Withdrawal syndrome [Unknown]
  - Intentional product use issue [Unknown]
  - Irritability [Unknown]
  - Malaise [Unknown]
  - Drug abuse [Unknown]
  - Blood pressure increased [Unknown]
  - Hot flush [Unknown]
  - Hyperhidrosis [Unknown]
  - Tremor [Unknown]
  - Depression [Recovered/Resolved]
